FAERS Safety Report 8165147-5 (Version None)
Quarter: 2012Q1

REPORT INFORMATION
  Report Type: 
  Country: None (occurrence: None)
  Receive Date: 20120227
  Receipt Date: 20120222
  Transmission Date: 20120608
  Serious: No
  Sender: FDA-Public Use
  Company Number: US-PFIZER INC-2012047412

PATIENT
  Sex: Male
  Weight: 88.435 kg

DRUGS (13)
  1. ISOSORBIDE MONONITRATE [Concomitant]
     Dosage: 30 MG, UNK
  2. CLONAZEPAM [Concomitant]
     Dosage: 1 MG, UNK
  3. FISH OIL [Concomitant]
     Dosage: UNK
  4. CHANTIX [Suspect]
     Dosage: UNK, 2X/DAY
     Route: 048
     Dates: start: 20111101, end: 20120201
  5. NIFEDIPINE [Concomitant]
     Dosage: 30 MG, UNK
  6. CALCIUM CARBONATE/ERGOCALCIFEROL [Concomitant]
     Dosage: UNK
  7. OMEPRAZOLE [Concomitant]
     Dosage: 20 MG, UNK
  8. MULTI-VITAMINS [Concomitant]
     Dosage: UNK
  9. CHANTIX [Suspect]
     Indication: SMOKING CESSATION THERAPY
     Dosage: 0.5 MG, 1X/DAY
     Route: 048
     Dates: start: 20111101, end: 20111101
  10. IBUPROFEN [Concomitant]
     Dosage: UNK
  11. ACETYLSALICYLIC ACID [Concomitant]
     Dosage: 81 MG, UNK
  12. BENICAR HCT [Concomitant]
     Dosage: 40MG/12.5MG, UNK
  13. ATORVASTATIN [Concomitant]
     Dosage: 40 MG, UNK

REACTIONS (4)
  - NERVOUSNESS [None]
  - ABNORMAL DREAMS [None]
  - NAUSEA [None]
  - DECREASED APPETITE [None]
